FAERS Safety Report 9161422 (Version 1)
Quarter: 2013Q1

REPORT INFORMATION
  Report Type: Spontaneous
  Country: AU (occurrence: AU)
  Receive Date: 20130313
  Receipt Date: 20130313
  Transmission Date: 20140127
  Serious: No
  Sender: FDA-Public Use
  Company Number: AU-009507513-1303AUS006060

PATIENT
  Sex: Male

DRUGS (1)
  1. SAPHRIS [Suspect]
     Dosage: SUBLINGUAL WAFER
     Route: 060

REACTIONS (1)
  - Angioedema [Recovered/Resolved]
